FAERS Safety Report 4765403-4 (Version None)
Quarter: 2005Q3

REPORT INFORMATION
  Report Type: 
  Country: None (occurrence: None)
  Receive Date: 20050907
  Receipt Date: 20050907
  Transmission Date: 20060218
  Serious: Yes (Hospitalization)
  Sender: FDA-Public Use
  Company Number: None

PATIENT
  Age: 67 Year
  Sex: Female

DRUGS (2)
  1. IREBESARTAN [Suspect]
     Indication: RENAL FAILURE CHRONIC
     Dosage: 150 MG PO BID
     Route: 048
  2. VIOXX [Suspect]
     Indication: RENAL FAILURE ACUTE
     Dosage: 25 MG PO DAILY
     Route: 048

REACTIONS (3)
  - ASTHENIA [None]
  - HYPERGLYCAEMIA [None]
  - RENAL FAILURE ACUTE [None]
